FAERS Safety Report 21139114 (Version 4)
Quarter: 2022Q3

REPORT INFORMATION
  Report Type: Report from Study
  Country: US (occurrence: US)
  Receive Date: 20220727
  Receipt Date: 20220926
  Transmission Date: 20221027
  Serious: Yes (Death, Hospitalization, Other)
  Sender: FDA-Public Use
  Company Number: US-GILEAD-2022-0585062

PATIENT
  Age: 69 Year
  Sex: Female

DRUGS (9)
  1. AMBRISENTAN [Suspect]
     Active Substance: AMBRISENTAN
     Indication: Pulmonary hypertension
     Dosage: 10 MG, QD
     Route: 065
     Dates: start: 20120830
  2. UPTRAVI [Suspect]
     Active Substance: SELEXIPAG
     Indication: Product used for unknown indication
     Route: 065
     Dates: start: 20210710
  3. REMODULIN [Suspect]
     Active Substance: TREPROSTINIL
     Indication: Pulmonary hypertension
     Dosage: 21.2 NG, Q1MINUTE
     Route: 065
     Dates: start: 20220308
  4. REMODULIN [Suspect]
     Active Substance: TREPROSTINIL
     Dosage: 29.1 NG, Q1MINUTE
     Route: 065
     Dates: start: 202203
  5. REMODULIN [Suspect]
     Active Substance: TREPROSTINIL
     Dosage: 41 NG, Q1MINUTE
     Route: 065
     Dates: start: 20220214
  6. SILDENAFIL [Suspect]
     Active Substance: SILDENAFIL
     Indication: Pulmonary hypertension
     Dosage: 60 MG, TID
     Route: 065
     Dates: start: 201911
  7. SILDENAFIL [Suspect]
     Active Substance: SILDENAFIL
     Dosage: 60 MG, TID
     Route: 065
     Dates: start: 20151114
  8. SILDENAFIL [Suspect]
     Active Substance: SILDENAFIL
     Dosage: 60 MG, TID
     Route: 065
     Dates: start: 20150425
  9. LASIX [Concomitant]
     Active Substance: FUROSEMIDE

REACTIONS (17)
  - Cardiac disorder [Unknown]
  - Lung disorder [Unknown]
  - Heart rate increased [Not Recovered/Not Resolved]
  - Death [Fatal]
  - Dyspnoea [Unknown]
  - Intra-abdominal fluid collection [Not Recovered/Not Resolved]
  - Infusion site pain [Not Recovered/Not Resolved]
  - Infusion site swelling [Not Recovered/Not Resolved]
  - Tachypnoea [Unknown]
  - Heart rate increased [Unknown]
  - Oxygen saturation decreased [Not Recovered/Not Resolved]
  - Oxygen consumption increased [Not Recovered/Not Resolved]
  - Infusion site erythema [Not Recovered/Not Resolved]
  - Dyspnoea [Unknown]
  - Hypotension [Unknown]
  - Asthenia [Recovered/Resolved]
  - Dizziness [Recovered/Resolved]

NARRATIVE: CASE EVENT DATE: 20220601
